FAERS Safety Report 14054040 (Version 1)
Quarter: 2017Q4

REPORT INFORMATION
  Report Type: Spontaneous
  Country: US (occurrence: None)
  Receive Date: 20171006
  Receipt Date: 20171006
  Transmission Date: 20180321
  Serious: Yes (Hospitalization)
  Sender: FDA-Public Use
  Company Number: None

PATIENT
  Age: 48 Year
  Sex: Female

DRUGS (13)
  1. FERROUS SULFATE. [Concomitant]
     Active Substance: FERROUS SULFATE
  2. TIZANIDINE. [Concomitant]
     Active Substance: TIZANIDINE
  3. ZOLEDRONIC ACID [Suspect]
     Active Substance: ZOLEDRONIC ACID
     Indication: NEOPLASM MALIGNANT
     Dosage: 4MG/ML EVERY 3WEEKS INTRAVENOUSLY
     Route: 042
     Dates: start: 20170830
  4. MUTIVITAMIN [Concomitant]
  5. BACLOFEN. [Concomitant]
     Active Substance: BACLOFEN
  6. BETHANECHOL [Concomitant]
     Active Substance: BETHANECHOL
  7. DYAZIDE [Concomitant]
     Active Substance: HYDROCHLOROTHIAZIDE\TRIAMTERENE
  8. GABAPENTIN. [Concomitant]
     Active Substance: GABAPENTIN
  9. OMEPRAZOLE. [Concomitant]
     Active Substance: OMEPRAZOLE
  10. ZOLOFT [Concomitant]
     Active Substance: SERTRALINE HYDROCHLORIDE
  11. KEYTRUDA [Suspect]
     Active Substance: PEMBROLIZUMAB
     Route: 042
  12. NAPROXEN. [Concomitant]
     Active Substance: NAPROXEN
  13. SENEXON [Concomitant]
     Active Substance: SENNOSIDES A AND B

REACTIONS (1)
  - Hospitalisation [None]

NARRATIVE: CASE EVENT DATE: 2017
